FAERS Safety Report 5191412-X (Version None)
Quarter: 2006Q4

REPORT INFORMATION
  Report Type: 
  Country: None (occurrence: None)
  Receive Date: 20061226
  Receipt Date: 20061206
  Transmission Date: 20070319
  Serious: Yes (Hospitalization, Other)
  Sender: FDA-Public Use
  Company Number: JP-BRISTOL-MYERS SQUIBB COMPANY-13610480

PATIENT
  Age: 37 Year
  Sex: Male

DRUGS (6)
  1. EFAVIRENZ [Suspect]
     Indication: HIV INFECTION
     Route: 048
     Dates: start: 20010501, end: 20051116
  2. ZERIT [Suspect]
     Indication: HIV INFECTION
     Dosage: MAY-2001 STOPPED IN APR-2005
     Route: 048
     Dates: start: 20010501, end: 20051116
  3. EPIVIR [Suspect]
     Indication: HIV INFECTION
     Route: 048
     Dates: start: 20010501, end: 20051116
  4. VIREAD [Suspect]
     Indication: HIV INFECTION
     Route: 048
     Dates: start: 20050401, end: 20051116
  5. RHYTHMY [Concomitant]
  6. VALTREX [Concomitant]

REACTIONS (4)
  - DEPRESSED LEVEL OF CONSCIOUSNESS [None]
  - DEPRESSION [None]
  - LIPODYSTROPHY ACQUIRED [None]
  - OVERDOSE [None]
